FAERS Safety Report 16094786 (Version 1)
Quarter: 2019Q1

REPORT INFORMATION
  Report Type: Report from Study
  Country: US (occurrence: US)
  Receive Date: 20190320
  Receipt Date: 20190320
  Transmission Date: 20190418
  Serious: Yes (Death, Hospitalization)
  Sender: FDA-Public Use
  Company Number: US-ROCHE-2282376

PATIENT
  Age: 75 Year
  Sex: Female
  Weight: 75.8 kg

DRUGS (4)
  1. ATEZOLIZUMAB. [Suspect]
     Active Substance: ATEZOLIZUMAB
     Indication: CHOLANGIOCARCINOMA
     Dosage: ON DAYS 1 AND 15
     Route: 042
     Dates: start: 20180814
  2. VANCOMYCIN [Concomitant]
     Active Substance: VANCOMYCIN
  3. COBIMETINIB. [Suspect]
     Active Substance: COBIMETINIB
     Indication: CHOLANGIOCARCINOMA
     Dosage: ON DAYS 1 - 21?ON 23/AUG/2018, SHE RECIEVED LAST DOSE OF COBIMETINIB.
     Route: 048
     Dates: start: 20180814
  4. ZOSYN [Concomitant]
     Active Substance: PIPERACILLIN SODIUM\TAZOBACTAM SODIUM

REACTIONS (4)
  - Vomiting [Unknown]
  - Nausea [Unknown]
  - Dehydration [Unknown]
  - Disease progression [Fatal]

NARRATIVE: CASE EVENT DATE: 20180827
